FAERS Safety Report 6495570-6 (Version None)
Quarter: 2009Q4

REPORT INFORMATION
  Report Type: 
  Country: None (occurrence: None)
  Receive Date: 20091214
  Receipt Date: 20090715
  Transmission Date: 20100525
  Serious: No
  Sender: FDA-Public Use
  Company Number: US-BRISTOL-MYERS SQUIBB COMPANY-14703169

PATIENT
  Age: 57 Year
  Sex: Female
  Weight: 91 kg

DRUGS (6)
  1. ABILIFY [Suspect]
     Indication: MAJOR DEPRESSION
  2. ABILIFY [Suspect]
     Indication: POST-TRAUMATIC STRESS DISORDER
  3. LIPITOR [Concomitant]
  4. ESTROGEN [Concomitant]
  5. ASPIRIN [Concomitant]
  6. CLONAZEPAM [Concomitant]

REACTIONS (2)
  - ANGER [None]
  - IRRITABILITY [None]
